FAERS Safety Report 10482566 (Version 1)
Quarter: 2014Q3

REPORT INFORMATION
  Report Type: Report from Study
  Country: US (occurrence: US)
  Receive Date: 20140929
  Receipt Date: 20140929
  Transmission Date: 20150326
  Serious: No
  Sender: FDA-Public Use
  Company Number: US-ALEXION-A200901523

PATIENT

DRUGS (1)
  1. SOLIRIS [Suspect]
     Active Substance: ECULIZUMAB
     Indication: PAROXYSMAL NOCTURNAL HAEMOGLOBINURIA
     Dosage: 1200 MG, Q14D
     Route: 042

REACTIONS (6)
  - Fatigue [Unknown]
  - Haemoglobin decreased [Unknown]
  - Drug hypersensitivity [Unknown]
  - Stress [Unknown]
  - Poor quality sleep [Unknown]
  - Haemolysis [Unknown]
